FAERS Safety Report 7983635-9 (Version None)
Quarter: 2011Q4

REPORT INFORMATION
  Report Type: 
  Country: None (occurrence: None)
  Receive Date: 20111215
  Receipt Date: 20111208
  Transmission Date: 20120403
  Serious: Yes (Hospitalization, Other)
  Sender: FDA-Public Use
  Company Number: US-ASTRAZENECA-2010SE37902

PATIENT
  Age: 57 Year
  Sex: Female
  Weight: 77.1 kg

DRUGS (30)
  1. SEROQUEL [Suspect]
     Dosage: 200 AND ONE AND A HALF MG IN THE MORNING AND ANOTHER 200 AND ONE AND A HALF MG IN THE EVENING.
     Route: 048
     Dates: start: 20091101, end: 20110601
  2. SEROQUEL [Suspect]
     Dosage: 200 AND ONE AND A HALF MG IN THE MORNING AND ANOTHER 200 AND ONE AND A HALF MG IN THE EVENING.
     Route: 048
     Dates: start: 20091101, end: 20110601
  3. SEROQUEL [Suspect]
     Dosage: SEROQUEL TWO TABLETS AND HALF OF 200 MG AT BEDTIME
     Route: 048
  4. SEROQUEL [Suspect]
     Route: 048
  5. SEROQUEL [Suspect]
     Route: 048
  6. BACLOFIN [Concomitant]
  7. SEROQUEL [Suspect]
     Route: 048
     Dates: start: 20110101
  8. SEROQUEL [Suspect]
     Dosage: SEROQUEL TWO TABLETS AND HALF OF 200 MG AT BEDTIME
     Route: 048
  9. TEMAZEPAM [Concomitant]
  10. SEROQUEL [Suspect]
     Route: 048
  11. PEPCID [Concomitant]
  12. NADOLOL [Concomitant]
  13. SEROQUEL [Suspect]
     Indication: ANXIETY
     Dosage: 200 AND ONE AND A HALF MG IN THE MORNING AND ANOTHER 200 AND ONE AND A HALF MG IN THE EVENING.
     Route: 048
     Dates: start: 20090101
  14. SEROQUEL [Suspect]
     Dosage: 200 AND ONE AND A HALF MG IN THE MORNING AND ANOTHER 200 AND ONE AND A HALF MG IN THE EVENING.
     Route: 048
     Dates: start: 20091101, end: 20110601
  15. SEROQUEL [Suspect]
     Dosage: SEROQUEL TWO TABLETS AND HALF OF 200 MG AT BEDTIME
     Route: 048
  16. OXYCODONE HCL [Concomitant]
  17. TRAMADOL HCL [Concomitant]
  18. ATIVAN [Concomitant]
  19. SEROQUEL [Suspect]
     Indication: DEPRESSION
     Dosage: 200 AND ONE AND A HALF MG IN THE MORNING AND ANOTHER 200 AND ONE AND A HALF MG IN THE EVENING.
     Route: 048
     Dates: start: 20090101
  20. SEROQUEL [Suspect]
     Indication: BIPOLAR I DISORDER
     Dosage: 200 AND ONE AND A HALF MG IN THE MORNING AND ANOTHER 200 AND ONE AND A HALF MG IN THE EVENING.
     Route: 048
     Dates: start: 20090101
  21. SEROQUEL [Suspect]
     Dosage: 200 AND ONE AND A HALF MG IN THE MORNING AND ANOTHER 200 AND ONE AND A HALF MG IN THE EVENING.
     Route: 048
     Dates: start: 20091101, end: 20110601
  22. SEROQUEL [Suspect]
     Route: 048
     Dates: start: 20110101
  23. SEROQUEL [Suspect]
     Route: 048
  24. SEROQUEL [Suspect]
     Indication: INSOMNIA
     Dosage: 200 AND ONE AND A HALF MG IN THE MORNING AND ANOTHER 200 AND ONE AND A HALF MG IN THE EVENING.
     Route: 048
     Dates: start: 20090101
  25. SEROQUEL [Suspect]
     Route: 048
     Dates: start: 20110101
  26. SEROQUEL [Suspect]
     Route: 048
     Dates: start: 20110101
  27. SEROQUEL [Suspect]
     Dosage: SEROQUEL TWO TABLETS AND HALF OF 200 MG AT BEDTIME
     Route: 048
  28. FIORICET [Concomitant]
  29. PROZAC [Concomitant]
  30. GAPANTIN [Concomitant]

REACTIONS (19)
  - DEHYDRATION [None]
  - DRUG WITHDRAWAL SYNDROME [None]
  - DRUG DOSE OMISSION [None]
  - FALL [None]
  - RIB FRACTURE [None]
  - AMNESIA [None]
  - DYSPHEMIA [None]
  - OFF LABEL USE [None]
  - WRONG TECHNIQUE IN DRUG USAGE PROCESS [None]
  - VOMITING [None]
  - HALLUCINATION [None]
  - INSOMNIA [None]
  - HEAD INJURY [None]
  - DEPRESSION [None]
  - GASTRIC DISORDER [None]
  - WRIST FRACTURE [None]
  - STRESS [None]
  - UPPER LIMB FRACTURE [None]
  - MENTAL IMPAIRMENT [None]
